FAERS Safety Report 5939771-1 (Version None)
Quarter: 2008Q4

REPORT INFORMATION
  Report Type: 
  Country: None (occurrence: None)
  Receive Date: 20081031
  Receipt Date: 20081031
  Transmission Date: 20090506
  Serious: Yes (Other)
  Sender: FDA-Public Use
  Company Number: None

PATIENT
  Sex: Female
  Weight: 58.9676 kg

DRUGS (1)
  1. LAMICTAL [Suspect]
     Indication: BIPOLAR II DISORDER
     Dosage: 200 MG ONCE DAILY PO
     Route: 048
     Dates: start: 20010901, end: 20080712

REACTIONS (7)
  - ALTERED VISUAL DEPTH PERCEPTION [None]
  - FATIGUE [None]
  - IMPAIRED WORK ABILITY [None]
  - IRRITABILITY [None]
  - MUSCLE DISORDER [None]
  - NERVOUSNESS [None]
  - WITHDRAWAL SYNDROME [None]
